FAERS Safety Report 7719099-X (Version None)
Quarter: 2011Q3

REPORT INFORMATION
  Report Type: 
  Country: None (occurrence: None)
  Receive Date: 20110830
  Receipt Date: 20110829
  Transmission Date: 20111222
  Serious: Yes (Hospitalization)
  Sender: FDA-Public Use
  Company Number: US-VERTEX PHARMACEUTICALS INC.-AE-2011-000539

PATIENT
  Age: 56 Year
  Sex: Male

DRUGS (4)
  1. RBV [Concomitant]
     Indication: HEPATITIS C
     Dates: start: 20110703, end: 20110712
  2. ALLOPURINOL [Concomitant]
     Indication: GOUT
  3. INCIVEK [Suspect]
     Indication: HEPATITIS C
     Dates: start: 20110703, end: 20110712
  4. POLYETHYLENE GLYCOL [Concomitant]
     Indication: HEPATITIS C
     Dates: start: 20110703, end: 20110712

REACTIONS (5)
  - PAIN IN EXTREMITY [None]
  - FATIGUE [None]
  - BONE INFARCTION [None]
  - DEHYDRATION [None]
  - PYREXIA [None]
